FAERS Safety Report 8991854 (Version 1)
Quarter: 2012Q4

REPORT INFORMATION
  Report Type: 
  Country: US (occurrence: US)
  Receive Date: 20121231
  Receipt Date: 20121231
  Transmission Date: 20130627
  Serious: Yes (Other)
  Sender: FDA-Public Use
  Company Number: US-BRISTOL-MYERS SQUIBB COMPANY-17230988

PATIENT
  Age: 75 Year
  Sex: Female
  Weight: 66.66 kg

DRUGS (4)
  1. AVAPRO [Suspect]
  2. LIPITOR [Concomitant]
  3. ATENOLOL [Concomitant]
  4. ASPIRIN [Concomitant]

REACTIONS (1)
  - Macular degeneration [Unknown]
